FAERS Safety Report 14472859 (Version 2)
Quarter: 2018Q1

REPORT INFORMATION
  Report Type: Spontaneous
  Country: BR (occurrence: BR)
  Receive Date: 20180201
  Receipt Date: 20180305
  Transmission Date: 20180509
  Serious: Yes (Other)
  Sender: FDA-Public Use
  Company Number: BR-MERCK KGAA-2041186

PATIENT
  Age: 51 Year
  Sex: Female

DRUGS (1)
  1. NOVOTHYROX [Suspect]
     Active Substance: LEVOTHYROXINE SODIUM
     Indication: POST PROCEDURAL HYPOTHYROIDISM
     Route: 048
     Dates: start: 20171122, end: 20180121

REACTIONS (12)
  - Balance disorder [Recovering/Resolving]
  - Thyroxine increased [Recovering/Resolving]
  - Apathy [Recovering/Resolving]
  - Dysphagia [Recovering/Resolving]
  - Insomnia [Recovering/Resolving]
  - Exophthalmos [Recovering/Resolving]
  - Dysphonia [Recovering/Resolving]
  - Blood pressure abnormal [Recovering/Resolving]
  - Muscular weakness [Recovering/Resolving]
  - Malaise [Recovering/Resolving]
  - Malaise [Recovering/Resolving]
  - Mood altered [Recovering/Resolving]

NARRATIVE: CASE EVENT DATE: 201712
